FAERS Safety Report 24010176 (Version 1)
Quarter: 2024Q2

REPORT INFORMATION
  Report Type: Spontaneous
  Country: US (occurrence: None)
  Receive Date: 20240624
  Receipt Date: 20240624
  Transmission Date: 20240716
  Serious: Yes (Hospitalization)
  Sender: FDA-Public Use
  Company Number: None

PATIENT
  Sex: Female

DRUGS (6)
  1. XOLAIR [Suspect]
     Active Substance: OMALIZUMAB
     Indication: Asthma
     Dosage: FREQUENCY : AS DIRECTED;?
     Route: 058
  2. XOLAIR [Suspect]
     Active Substance: OMALIZUMAB
     Indication: Asthma
     Dosage: FREQUENCY : AS DIRECTED;?
     Route: 058
  3. CETIRIZINE  CHW 5MG [Concomitant]
  4. RIZATRIPTAN [Concomitant]
     Active Substance: RIZATRIPTAN
  5. BUDES/FORMOT AER [Concomitant]
  6. FLUTICASONE SPR [Concomitant]

REACTIONS (4)
  - Asthma [None]
  - Quality of life decreased [None]
  - Headache [None]
  - Therapy cessation [None]
